FAERS Safety Report 10243449 (Version 1)
Quarter: 2014Q2

REPORT INFORMATION
  Report Type: Spontaneous
  Country: US (occurrence: None)
  Receive Date: 20140616
  Receipt Date: 20140616
  Transmission Date: 20141212
  Serious: Yes (Hospitalization)
  Sender: FDA-Public Use
  Company Number: US-H14001-14-00037

PATIENT
  Age: 41 Year
  Sex: Female

DRUGS (8)
  1. HYDROXYCHLOROQUINE (HYDROXYCHLOROQUINE) (UNKNOWN) (HYDROXYCHLOROQUINE) [Suspect]
     Indication: PRODUCT USED FOR UNKNOWN INDICATION
  2. CALCITRIOL (CALCITRIOL) (UNKNOWN) (CALCITRIOL) [Concomitant]
  3. CARVEDILOL (CARVEDILOL) (UNKNOWN) (CARVEDILOL) [Concomitant]
  4. FERROUS SULFATE (FERROUS SULFATE) (UNKNOWN) (FERROUS SULFATE) [Concomitant]
  5. MULTIVITAMIN(MULTIVITAMINS)(UNKNOWN)(ERGOCALCIFEROL, ASCORBIC ACID, FOLIC ACID, THIAMINE HYDROCHLORIDE, RETINOL, RIBOFLAVIN, NICOTINAMIDE, PANTHENOL) [Concomitant]
  6. MYCOPHENOLIC ACID (MYCOPHENOLIC ACID) (UNKNOWN) (MYCOPHENOLIC ACID) [Concomitant]
  7. NIFEDIPINE (NIFEDIPINE) (UNKNOWN) (NIFEDIPINE) [Concomitant]
  8. SODIUM CARBONATE (SODIUM CARBONATE) (UNKNOWN) (SODIUM CARBONATE) [Concomitant]

REACTIONS (3)
  - Electrocardiogram QT prolonged [None]
  - Ventricular arrhythmia [None]
  - Treatment noncompliance [None]
